FAERS Safety Report 8319010 (Version 5)
Quarter: 2013Q2

REPORT INFORMATION
  Report Type: Report from Study
  Country: IT (occurrence: IT)
  Receive Date: 20120103
  Receipt Date: 20130401
  Transmission Date: 20140414
  Serious: Yes (Hospitalization)
  Sender: FDA-Public Use
  Company Number: IT-ASTRAZENECA-2011SE78258

PATIENT
  Age: 19721 Day
  Sex: Female
  Weight: 80 kg

DRUGS (3)
  1. FASLODEX [Suspect]
     Indication: BREAST CANCER METASTATIC
     Dosage: 2 VIALS OF 250 MG EVERY 14 DAYS
     Route: 030
     Dates: start: 20111109, end: 20111209
  2. LETROZOLE [Suspect]
     Indication: BREAST CANCER METASTATIC
     Route: 048
     Dates: start: 20111109, end: 20111219
  3. LAPATINIB [Suspect]
     Indication: BREAST CANCER METASTATIC
     Dosage: DAILY
     Route: 048
     Dates: start: 20111109, end: 20111219

REACTIONS (5)
  - Cardiac failure [Recovered/Resolved]
  - Dyspnoea [Recovered/Resolved]
  - Oedema peripheral [Recovered/Resolved]
  - Respiratory failure [None]
  - Hypertensive crisis [None]
